FAERS Safety Report 11306586 (Version 1)
Quarter: 2015Q3

REPORT INFORMATION
  Report Type: Spontaneous
  Country: DE (occurrence: DE)
  Receive Date: 20150723
  Receipt Date: 20150723
  Transmission Date: 20151125
  Serious: Yes (Other)
  Sender: FDA-Public Use
  Company Number: PHHY2015DE088045

PATIENT
  Age: 87 Year
  Sex: Female

DRUGS (4)
  1. EXELON [Suspect]
     Active Substance: RIVASTIGMINE TARTRATE
     Dosage: 6 MG, QD(1.5 MG AT 7 AM, 1.5 MG AT 11 AM AND 3 MG IN THE EVENING)
     Route: 048
  2. EXELON [Suspect]
     Active Substance: RIVASTIGMINE TARTRATE
     Dosage: 7.5 MG, QD(1.5 MG AT 7 AM, 1.5 MG AT 11 AM AND 3 MG IN THE EVENING AND ADDITIONAL 1.5 MG AT 4 PM)
     Route: 048
  3. EXELON [Suspect]
     Active Substance: RIVASTIGMINE TARTRATE
     Dosage: 6 MG, QD(3 MG IN MORNING AND 3 MG IN EVENING)
     Route: 048
  4. EXELON [Suspect]
     Active Substance: RIVASTIGMINE TARTRATE
     Indication: PARKINSON^S DISEASE
     Dosage: 6 MG, QD(1.5 MG AT 7 AM, 1.5 MG AT 11 AM AND 3 MG IN THE EVENING)
     Route: 048

REACTIONS (3)
  - Incorrect drug administration duration [Unknown]
  - Tremor [Unknown]
  - Dementia [Unknown]
